FAERS Safety Report 8286499-1 (Version None)
Quarter: 2012Q2

REPORT INFORMATION
  Report Type: 
  Country: None (occurrence: None)
  Receive Date: 20120411
  Receipt Date: 20120330
  Transmission Date: 20120825
  Serious: Yes (Hospitalization)
  Sender: FDA-Public Use
  Company Number: 2011S1000570

PATIENT
  Age: 79 Year
  Sex: Female
  Weight: 52 kg

DRUGS (7)
  1. LIVALO [Suspect]
     Indication: HYPERCHOLESTEROLAEMIA
     Dosage: 1X;PO 2 MG;1X;PO
     Route: 048
     Dates: start: 20110411, end: 20110412
  2. LIVALO [Suspect]
     Indication: HYPERCHOLESTEROLAEMIA
     Dosage: 1X;PO 2 MG;1X;PO
     Route: 048
     Dates: end: 20110401
  3. OLMESARTAN MEDOXOMIL [Concomitant]
  4. SELBEX [Concomitant]
  5. LOXONIN-60 [Concomitant]
  6. PREDNISOLONE [Concomitant]
  7. BONALON /01220302/ [Concomitant]

REACTIONS (6)
  - GLOSSITIS [None]
  - PRURITUS [None]
  - GLOSSODYNIA [None]
  - TONGUE DISCOLOURATION [None]
  - BLISTER [None]
  - SKIN EROSION [None]
